FAERS Safety Report 6412273-4 (Version None)
Quarter: 2009Q4

REPORT INFORMATION
  Report Type: 
  Country: None (occurrence: None)
  Receive Date: 20091023
  Receipt Date: 20091014
  Transmission Date: 20100525
  Serious: Yes (Other)
  Sender: FDA-Public Use
  Company Number: AR-ELI_LILLY_AND_COMPANY-AR200909002179

PATIENT
  Age: 42 Year
  Sex: Female

DRUGS (4)
  1. BYETTA [Suspect]
     Indication: TYPE 2 DIABETES MELLITUS
     Dosage: 5 UG, UNKNOWN
     Route: 058
     Dates: start: 20080501, end: 20080101
  2. BYETTA [Suspect]
     Dosage: 10 UG, UNKNOWN
     Route: 058
     Dates: end: 20080101
  3. RANITIDINE [Concomitant]
     Indication: GASTRITIS EROSIVE
     Dosage: UNK, 3/D
     Route: 065
  4. METFORMIN HCL [Concomitant]
     Dosage: UNK, UNKNOWN
     Route: 065

REACTIONS (9)
  - BLOOD GLUCOSE DECREASED [None]
  - DECREASED APPETITE [None]
  - DIARRHOEA [None]
  - GASTRITIS EROSIVE [None]
  - NAUSEA [None]
  - URINARY TRACT INFECTION [None]
  - VOMITING [None]
  - WEIGHT DECREASED [None]
  - WEIGHT INCREASED [None]
